FAERS Safety Report 22129522 (Version 1)
Quarter: 2023Q1

REPORT INFORMATION
  Report Type: Spontaneous
  Country: US (occurrence: None)
  Receive Date: 20230323
  Receipt Date: 20230323
  Transmission Date: 20230418
  Serious: Yes (Hospitalization, Other)
  Sender: FDA-Public Use
  Company Number: US-Unichem Pharmaceuticals (USA) Inc-UCM202303-000315

PATIENT
  Age: 72 Year
  Sex: Female

DRUGS (1)
  1. ATENOLOL [Suspect]
     Active Substance: ATENOLOL
     Indication: Hypertension
     Dosage: UNKNOWN

REACTIONS (3)
  - BRASH syndrome [Recovering/Resolving]
  - Bradycardia [Recovered/Resolved]
  - Condition aggravated [Recovered/Resolved]
